FAERS Safety Report 8209356-5 (Version None)
Quarter: 2012Q1

REPORT INFORMATION
  Report Type: 
  Country: None (occurrence: None)
  Receive Date: 20120314
  Receipt Date: 20120312
  Transmission Date: 20120608
  Serious: Yes (Hospitalization)
  Sender: FDA-Public Use
  Company Number: IT-BAYER-2012-023842

PATIENT

DRUGS (6)
  1. LANSOPRAZOLE [Concomitant]
     Dosage: DAILY DOSE 30 MG
     Route: 048
     Dates: start: 20080615, end: 20120229
  2. ALLOPURINOL [Concomitant]
     Dosage: DAILY DOSE 300 MG
     Route: 048
     Dates: start: 20110905, end: 20120229
  3. NEXAVAR [Suspect]
     Indication: HEPATIC NEOPLASM MALIGNANT
     Dosage: DAILY DOSE 800 MG
     Route: 048
     Dates: start: 20111104, end: 20120229
  4. BISOPROLOL FUMARATE [Concomitant]
     Dosage: DAILY DOSE 10 MG
     Route: 048
     Dates: start: 20090615, end: 20120229
  5. BARNIDIPINE [Concomitant]
     Dosage: DAILY DOSE 10 MG
     Route: 048
     Dates: start: 20090615, end: 20120229
  6. CALCIUM CARBONATE [Concomitant]
     Dosage: DAILY DOSE 1000 MG
     Route: 048
     Dates: start: 20110905, end: 20120229

REACTIONS (3)
  - OEDEMA PERIPHERAL [None]
  - HYPOALBUMINAEMIA [None]
  - PYREXIA [None]
